FAERS Safety Report 4507539-9 (Version None)
Quarter: 2004Q4

REPORT INFORMATION
  Report Type: 
  Country: None (occurrence: None)
  Receive Date: 20041018
  Receipt Date: 20040813
  Transmission Date: 20050328
  Serious: No
  Sender: FDA-Public Use
  Company Number: 208472

PATIENT
  Sex: Female

DRUGS (4)
  1. XOLAIR [Suspect]
     Indication: DRUG USE FOR UNKNOWN INDICATION
     Dosage: 300 MG, 1/WEEK, SUBCUTANEOUS
     Route: 058
     Dates: start: 20040607, end: 20040810
  2. ZYRTEC [Concomitant]
  3. SINGULAIR [Concomitant]
  4. PATANOL [Concomitant]

REACTIONS (2)
  - EYE SWELLING [None]
  - WHEEZING [None]
